FAERS Safety Report 7174929-8 (Version None)
Quarter: 2010Q4

REPORT INFORMATION
  Report Type: 
  Country: None (occurrence: None)
  Receive Date: 20101220
  Receipt Date: 20100405
  Transmission Date: 20110411
  Serious: No
  Sender: FDA-Public Use
  Company Number: US-AMGEN-TCS403895

PATIENT

DRUGS (2)
  1. ENBREL [Suspect]
     Indication: JUVENILE ARTHRITIS
     Dosage: 17.5 MG, QWK
     Route: 058
  2. METHOTREXATE [Concomitant]
     Dosage: UNK UNK, UNK

REACTIONS (5)
  - AGGRESSION [None]
  - CONTUSION [None]
  - INCREASED TENDENCY TO BRUISE [None]
  - MOOD SWINGS [None]
  - PERSONALITY CHANGE [None]
